APPROVED DRUG PRODUCT: CYCLOCORT
Active Ingredient: AMCINONIDE
Strength: 0.1%
Dosage Form/Route: LOTION;TOPICAL
Application: N019729 | Product #001
Applicant: ASTELLAS PHARMA US INC
Approved: Jun 13, 1988 | RLD: Yes | RS: No | Type: DISCN